FAERS Safety Report 5481468-9 (Version None)
Quarter: 2007Q4

REPORT INFORMATION
  Report Type: 
  Country: None (occurrence: None)
  Receive Date: 20071010
  Receipt Date: 20071008
  Transmission Date: 20080405
  Serious: Yes (Other)
  Sender: FDA-Public Use
  Company Number: US-BRISTOL-MYERS SQUIBB COMPANY-13933643

PATIENT
  Age: 62 Year
  Sex: Female
  Weight: 83 kg

DRUGS (4)
  1. CETUXIMAB [Suspect]
     Indication: ANAL CANCER
     Dates: start: 20070820, end: 20070820
  2. CISPLATIN [Suspect]
     Indication: ANAL CANCER
     Dates: start: 20070820, end: 20070820
  3. FLUOROURACIL [Suspect]
     Indication: ANAL CANCER
     Dates: start: 20070820, end: 20070824
  4. RADIATION THERAPY [Suspect]
     Indication: ANAL CANCER
     Dosage: DOSAGE UNIT IS ^GY^
     Dates: end: 20070914

REACTIONS (1)
  - THROMBOSIS [None]
